FAERS Safety Report 26044448 (Version 1)
Quarter: 2025Q4

REPORT INFORMATION
  Report Type: Spontaneous
  Country: US (occurrence: US)
  Receive Date: 20251114
  Receipt Date: 20251114
  Transmission Date: 20260118
  Serious: No
  Sender: LEO PHARM
  Company Number: US-LEO Pharma-384178

PATIENT
  Age: 21 Year
  Sex: Female

DRUGS (1)
  1. ANZUPGO [Suspect]
     Active Substance: DELGOCITINIB
     Indication: Dermatitis
     Route: 003
     Dates: start: 202509

REACTIONS (4)
  - Pruritus [Unknown]
  - Product use in unapproved indication [Unknown]
  - Skin burning sensation [Unknown]
  - Rash [Unknown]
